FAERS Safety Report 8080965-X (Version None)
Quarter: 2012Q1

REPORT INFORMATION
  Report Type: 
  Country: None (occurrence: None)
  Receive Date: 20120130
  Receipt Date: 20120119
  Transmission Date: 20120608
  Serious: Yes (Hospitalization, Disabling)
  Sender: FDA-Public Use
  Company Number: US-MERCK-1108USA02429

PATIENT
  Age: 51 Year
  Sex: Female

DRUGS (8)
  1. FOSAMAX [Suspect]
     Route: 048
     Dates: start: 20080601, end: 20091101
  2. FOSAMAX [Suspect]
     Indication: OSTEOPENIA
     Route: 048
     Dates: start: 20030101, end: 20070301
  3. WELLBUTRIN [Concomitant]
     Indication: DEPRESSION
     Route: 065
     Dates: start: 19970101
  4. ALENDRONATE SODIUM [Suspect]
     Route: 065
     Dates: start: 20080101
  5. FOSAMAX [Suspect]
     Route: 048
     Dates: start: 20070401, end: 20080601
  6. PLAVIX [Concomitant]
     Indication: ANTIPLATELET THERAPY
     Route: 065
     Dates: start: 20030101
  7. ZOLOFT [Concomitant]
     Indication: DEPRESSION
     Route: 065
     Dates: start: 19970101
  8. TRIAMTERENE [Concomitant]
     Indication: DIURETIC THERAPY
     Route: 065
     Dates: start: 20030101, end: 20080101

REACTIONS (12)
  - BONE DISORDER [None]
  - WRIST FRACTURE [None]
  - JAW DISORDER [None]
  - BLOOD CHOLESTEROL INCREASED [None]
  - DYSAESTHESIA [None]
  - CARDIAC DISORDER [None]
  - PERIODONTAL DISEASE [None]
  - TOOTH ABSCESS [None]
  - DENTAL FISTULA [None]
  - OSTEONECROSIS OF JAW [None]
  - CHEST DISCOMFORT [None]
  - TOOTH FRACTURE [None]
